FAERS Safety Report 13022057 (Version 1)
Quarter: 2016Q4

REPORT INFORMATION
  Report Type: Spontaneous
  Country: US (occurrence: US)
  Receive Date: 20161213
  Receipt Date: 20161213
  Transmission Date: 20170207
  Serious: No
  Sender: FDA-Public Use
  Company Number: US-SHIRE-US201618244

PATIENT
  Sex: Female

DRUGS (1)
  1. XIIDRA [Suspect]
     Active Substance: LIFITEGRAST
     Indication: SJOGREN^S SYNDROME
     Dosage: UNK (50 MG/ML), UNKNOWN
     Route: 047

REACTIONS (3)
  - Instillation site pain [Unknown]
  - Instillation site reaction [Unknown]
  - Product use issue [Unknown]
